FAERS Safety Report 7911844-3 (Version None)
Quarter: 2011Q4

REPORT INFORMATION
  Report Type: 
  Country: None (occurrence: None)
  Receive Date: 20111114
  Receipt Date: 20111108
  Transmission Date: 20120403
  Serious: Yes (Other)
  Sender: FDA-Public Use
  Company Number: IT-JNJFOC-20111009062

PATIENT
  Sex: Female

DRUGS (3)
  1. XANAX [Concomitant]
     Indication: ANXIETY
     Route: 048
  2. MIRTAZAPINE [Concomitant]
     Indication: MAJOR DEPRESSION
     Route: 048
  3. RISPERDAL [Suspect]
     Indication: MAJOR DEPRESSION
     Route: 048
     Dates: start: 20111018, end: 20111018

REACTIONS (4)
  - INTENTIONAL OVERDOSE [None]
  - ABDOMINAL PAIN [None]
  - SLOW SPEECH [None]
  - SELF INJURIOUS BEHAVIOUR [None]
